FAERS Safety Report 15347562 (Version 1)
Quarter: 2018Q3

REPORT INFORMATION
  Report Type: Report from Study
  Country: JP (occurrence: JP)
  Receive Date: 20180904
  Receipt Date: 20180904
  Transmission Date: 20181010
  Serious: Yes (Hospitalization, Other)
  Sender: FDA-Public Use
  Company Number: JP-SA-2018SA230010

PATIENT
  Age: 69 Year
  Sex: Male

DRUGS (8)
  1. DARBEPOETIN ALFA RECOMBINANT [Suspect]
     Active Substance: DARBEPOETIN ALFA
     Dosage: UNK
     Dates: start: 20160121
  2. DARBEPOETIN ALFA RECOMBINANT [Suspect]
     Active Substance: DARBEPOETIN ALFA
     Dosage: UNK
     Route: 042
     Dates: start: 20161013, end: 20161103
  3. SEVELAMER HYDROCHLORIDE [Suspect]
     Active Substance: SEVELAMER HYDROCHLORIDE
     Dosage: UNK
     Route: 048
     Dates: start: 20120929, end: 20171121
  4. ROCALTROL [Suspect]
     Active Substance: CALCITRIOL
     Dosage: UNK
     Route: 042
     Dates: start: 20151022
  5. DARBEPOETIN ALFA RECOMBINANT [Suspect]
     Active Substance: DARBEPOETIN ALFA
     Dosage: UNK
     Route: 042
     Dates: start: 20141113, end: 20160114
  6. ROCALTROL [Suspect]
     Active Substance: CALCITRIOL
     Dosage: UNK
     Route: 042
     Dates: start: 20130213, end: 20151015
  7. DARBEPOETIN ALFA RECOMBINANT [Suspect]
     Active Substance: DARBEPOETIN ALFA
     Dosage: UNK
     Route: 042
     Dates: start: 20160929, end: 20160929
  8. DARBEPOETIN ALFA RECOMBINANT [Suspect]
     Active Substance: DARBEPOETIN ALFA
     Dosage: UNK
     Route: 042
     Dates: start: 20161117

REACTIONS (4)
  - Gastroenteritis [Recovering/Resolving]
  - Hospitalisation [Recovering/Resolving]
  - Hospitalisation [Recovering/Resolving]
  - Hospitalisation [Recovering/Resolving]

NARRATIVE: CASE EVENT DATE: 20160523
